FAERS Safety Report 9660513 (Version 1)
Quarter: 2013Q4

REPORT INFORMATION
  Report Type: Spontaneous
  Country: US (occurrence: US)
  Receive Date: 20131031
  Receipt Date: 20131031
  Transmission Date: 20140711
  Serious: No
  Sender: FDA-Public Use
  Company Number: US-009507513-1310USA013987

PATIENT
  Sex: Female

DRUGS (9)
  1. PROVENTIL [Suspect]
     Indication: ASTHMA
     Dosage: 2 PUFFS, 4 TIMES A DAY
     Route: 055
     Dates: start: 201210
  2. ADVAIR [Concomitant]
  3. LIPITOR [Concomitant]
  4. PLAVIX [Concomitant]
  5. DILTIAZEM HYDROCHLORIDE [Concomitant]
  6. SYNTHROID [Concomitant]
  7. MICARDIS [Concomitant]
  8. RANITIDINE [Concomitant]
  9. SPIRIVA [Concomitant]

REACTIONS (3)
  - Drug ineffective [Recovered/Resolved]
  - Product quality issue [Unknown]
  - Underdose [Unknown]
